FAERS Safety Report 7083296-X (Version None)
Quarter: 2010Q4

REPORT INFORMATION
  Report Type: 
  Country: None (occurrence: None)
  Receive Date: 20101104
  Receipt Date: 20101022
  Transmission Date: 20110411
  Serious: Yes (Other)
  Sender: FDA-Public Use
  Company Number: PHHY2010US72109

PATIENT
  Sex: Female

DRUGS (5)
  1. FEMARA [Suspect]
     Dosage: UNK
  2. ARIMIDEX [Suspect]
     Dosage: UNK
     Dates: start: 20080301, end: 20080801
  3. CHEMOTHERAPEUTICS NOS [Suspect]
     Dosage: UNK
  4. THYROID [Concomitant]
  5. VITAMINS [Concomitant]

REACTIONS (4)
  - BONE PAIN [None]
  - HEPATIC CIRRHOSIS [None]
  - MYALGIA [None]
  - ULCER [None]
